FAERS Safety Report 11611609 (Version 2)
Quarter: 2015Q4

REPORT INFORMATION
  Report Type: Report from Study
  Country: CH (occurrence: CH)
  Receive Date: 20151008
  Receipt Date: 20151015
  Transmission Date: 20160304
  Serious: Yes (Other)
  Sender: FDA-Public Use
  Company Number: CH-ABBVIE-15P-151-1477002-00

PATIENT
  Age: 56 Year
  Sex: Female
  Weight: 110 kg

DRUGS (3)
  1. COPEGUS [Suspect]
     Active Substance: RIBAVIRIN
     Indication: HEPATITIS C
     Dosage: 600 MG IN THE MORNING, 600 MG IN THE EVENING
     Route: 048
     Dates: start: 20150929
  2. EXVIERA [Suspect]
     Active Substance: DASABUVIR
     Indication: HEPATITIS C
     Dosage: 1 IN THE MORNING, 1 IN THE EVENING
     Route: 048
     Dates: start: 20150929
  3. VIEKIRAX [Suspect]
     Active Substance: OMBITASVIR\PARITAPREVIR\RITONAVIR
     Indication: HEPATITIS C
     Dosage: 2 TABLETS IN THE MORNING
     Route: 048
     Dates: start: 20150929

REACTIONS (2)
  - Headache [Not Recovered/Not Resolved]
  - Diarrhoea [Recovered/Resolved]

NARRATIVE: CASE EVENT DATE: 20150929
